FAERS Safety Report 4483848-7 (Version None)
Quarter: 2004Q4

REPORT INFORMATION
  Report Type: 
  Country: None (occurrence: None)
  Receive Date: 20041021
  Receipt Date: 20041005
  Transmission Date: 20050328
  Serious: Yes (Other)
  Sender: FDA-Public Use
  Company Number: 200409085

PATIENT
  Sex: Male

DRUGS (2)
  1. PREDNISOLONE ACETATE 1.0% [Suspect]
     Dates: start: 20000501
  2. DICLOFENAC SODIUM [Suspect]
     Dates: start: 20000501

REACTIONS (2)
  - CORNEAL ULCER [None]
  - EYE PAIN [None]
